FAERS Safety Report 6170637-0 (Version None)
Quarter: 2009Q2

REPORT INFORMATION
  Report Type: 
  Country: None (occurrence: None)
  Receive Date: 20090428
  Receipt Date: 20090422
  Transmission Date: 20091009
  Serious: Yes (Hospitalization)
  Sender: FDA-Public Use
  Company Number: US-ELI_LILLY_AND_COMPANY-US200904001857

PATIENT
  Sex: Female

DRUGS (9)
  1. FORTEO [Suspect]
     Indication: OSTEOPOROSIS
     Dosage: 20 UG, DAILY (1/D)
     Dates: start: 20090225
  2. FORTEO [Suspect]
     Dates: start: 20090101
  3. PREDNISONE TAB [Concomitant]
  4. DIURETICS [Concomitant]
     Indication: BLOOD PRESSURE
  5. ASCORBIC ACID [Concomitant]
  6. CALCIUM [Concomitant]
     Dosage: 1200 MG, DAILY (1/D)
  7. POTASSIUM CHLORIDE [Concomitant]
     Dosage: 4 D/F, DAILY (1/D)
  8. REMICADE [Concomitant]
     Dates: end: 20090301
  9. METHOTREXATE [Concomitant]
     Dates: end: 20090301

REACTIONS (14)
  - ARTHRALGIA [None]
  - ASTHENIA [None]
  - DEVICE FAILURE [None]
  - FATIGUE [None]
  - FEELING ABNORMAL [None]
  - GINGIVAL PAIN [None]
  - MUSCULOSKELETAL CHEST PAIN [None]
  - MYALGIA [None]
  - NAUSEA [None]
  - PAIN [None]
  - PAIN IN EXTREMITY [None]
  - PAIN IN JAW [None]
  - SLEEP DISORDER [None]
  - TOOTHACHE [None]
